FAERS Safety Report 21534823 (Version 1)
Quarter: 2022Q4

REPORT INFORMATION
  Report Type: Spontaneous
  Country: US (occurrence: US)
  Receive Date: 20221101
  Receipt Date: 20221101
  Transmission Date: 20230113
  Serious: No
  Sender: FDA-Public Use
  Company Number: US-MIGRATION_PFIZER-2022BHV001503

PATIENT
  Sex: Female
  Weight: 106.69 kg

DRUGS (1)
  1. NURTEC ODT [Suspect]
     Active Substance: RIMEGEPANT SULFATE
     Indication: Migraine
     Dosage: I TAKE IT ONCE A WEEK FOR PREVENTIVE OR WHEN I START TO GET ANY MIGRAINE SYMPTOMS.
     Route: 048

REACTIONS (1)
  - COVID-19 [Recovered/Resolved]
